FAERS Safety Report 4427336-2 (Version None)
Quarter: 2004Q3

REPORT INFORMATION
  Report Type: 
  Country: None (occurrence: None)
  Receive Date: 20040811
  Receipt Date: 20040727
  Transmission Date: 20050211
  Serious: Yes (Hospitalization)
  Sender: FDA-Public Use
  Company Number: 2004-BP-06119RO

PATIENT
  Sex: Female

DRUGS (3)
  1. LITHIUM CARBONATE [Suspect]
  2. COVERSYL (PERINDOPRIL) [Suspect]
     Indication: ESSENTIAL HYPERTENSION
     Dosage: 4 MG QD
     Dates: start: 20031125, end: 20031209
  3. FUROSEMIDE [Suspect]
     Dates: end: 20031209

REACTIONS (7)
  - ABDOMINAL PAIN UPPER [None]
  - BLOOD CREATININE INCREASED [None]
  - DECREASED APPETITE [None]
  - DEHYDRATION [None]
  - LETHARGY [None]
  - THERAPEUTIC AGENT TOXICITY [None]
  - VOMITING [None]
